FAERS Safety Report 25117920 (Version 1)
Quarter: 2025Q1

REPORT INFORMATION
  Report Type: Spontaneous
  Country: CN (occurrence: CN)
  Receive Date: 20250325
  Receipt Date: 20250325
  Transmission Date: 20250409
  Serious: Yes (Other)
  Sender: SANOFI AVENTIS
  Company Number: CN-SA-2025SA084116

PATIENT
  Age: 62 Year
  Sex: Male
  Weight: 70 kg

DRUGS (12)
  1. OXALIPLATIN [Suspect]
     Active Substance: OXALIPLATIN
     Indication: Rectal cancer stage IV
     Route: 041
     Dates: start: 20250303, end: 20250303
  2. OXALIPLATIN [Suspect]
     Active Substance: OXALIPLATIN
     Indication: Cholangiocarcinoma
  3. OXALIPLATIN [Suspect]
     Active Substance: OXALIPLATIN
     Indication: Metastases to liver
  4. OXALIPLATIN [Suspect]
     Active Substance: OXALIPLATIN
     Indication: Metastases to lung
  5. CAPECITABINE [Concomitant]
     Active Substance: CAPECITABINE
     Indication: Rectal cancer stage IV
     Route: 048
     Dates: start: 20250303, end: 20250303
  6. CAPECITABINE [Concomitant]
     Active Substance: CAPECITABINE
     Indication: Metastases to liver
  7. CAPECITABINE [Concomitant]
     Active Substance: CAPECITABINE
     Indication: Cholangiocarcinoma
  8. CAPECITABINE [Concomitant]
     Active Substance: CAPECITABINE
     Indication: Metastases to lung
  9. PROMETHAZINE HYDROCHLORIDE [Concomitant]
     Active Substance: PROMETHAZINE HYDROCHLORIDE
     Indication: Chemotherapy side effect prophylaxis
     Route: 030
     Dates: start: 20250303, end: 20250303
  10. DEXAMETHASONE SODIUM PHOSPHATE [Concomitant]
     Active Substance: DEXAMETHASONE SODIUM PHOSPHATE
     Indication: Chemotherapy side effect prophylaxis
     Route: 042
     Dates: start: 20250303, end: 20250303
  11. VITAMIN B6 [Concomitant]
     Active Substance: PYRIDOXINE HYDROCHLORIDE
     Indication: Chemotherapy side effect prophylaxis
     Route: 041
     Dates: start: 20250303, end: 20250303
  12. FUROSEMIDE [Concomitant]
     Active Substance: FUROSEMIDE
     Route: 042
     Dates: start: 20250303

REACTIONS (10)
  - Gastrointestinal malformation [Recovered/Resolved]
  - Urinary incontinence [Recovered/Resolved]
  - Anal incontinence [Recovered/Resolved]
  - Nausea [Recovered/Resolved]
  - Vomiting [Recovered/Resolved]
  - Hypersensitivity [Recovering/Resolving]
  - Hyperhidrosis [Recovering/Resolving]
  - Palpitations [Recovering/Resolving]
  - Chest discomfort [Recovering/Resolving]
  - Chest pain [Recovering/Resolving]

NARRATIVE: CASE EVENT DATE: 20250303
